FAERS Safety Report 9475003 (Version 1)
Quarter: 2013Q3

REPORT INFORMATION
  Report Type: Spontaneous
  Country: US (occurrence: None)
  Receive Date: 20130822
  Receipt Date: 20130822
  Transmission Date: 20140515
  Serious: No
  Sender: FDA-Public Use
  Company Number: None

PATIENT
  Age: 66 Year
  Sex: Female
  Weight: 66.68 kg

DRUGS (11)
  1. LEVOFLOXACIN 750MG CVS. MFR: DR. REDDY^S LAB [Suspect]
     Indication: BRONCHITIS
     Route: 048
     Dates: start: 20130806, end: 20130811
  2. LEVOFLOXACIN 750MG CVS. MFR: DR. REDDY^S LAB [Suspect]
     Indication: SINUSITIS
     Route: 048
     Dates: start: 20130806, end: 20130811
  3. LOSARTAN/HCT 100-25 [Concomitant]
  4. PANTOPRAZOLE 40MG [Concomitant]
  5. KLOR-CON10 [Concomitant]
  6. METHOTREXATE 15MG [Concomitant]
  7. FURESOMIDE 20MG [Concomitant]
  8. TEMAZEPAM 15MG [Concomitant]
  9. FOLIC ACID 1MG [Concomitant]
  10. NEULIZER WITH BUDESOMIDE [Concomitant]
  11. MUCINEX [Concomitant]

REACTIONS (5)
  - Headache [None]
  - Bone pain [None]
  - Dizziness [None]
  - Nausea [None]
  - Dizziness [None]
